FAERS Safety Report 9047914 (Version 2)
Quarter: 2013Q2

REPORT INFORMATION
  Report Type: Spontaneous
  Country: US (occurrence: US)
  Receive Date: 20130204
  Receipt Date: 20130506
  Transmission Date: 20140414
  Serious: No
  Sender: FDA-Public Use
  Company Number: US-AMGEN-USASP2013005023

PATIENT
  Age: 57 Year
  Sex: Female

DRUGS (2)
  1. ENBREL [Suspect]
     Indication: RHEUMATOID ARTHRITIS
     Dosage: 50 MG, QWK
     Dates: start: 20121202
  2. METHOTREXATE [Concomitant]
     Dosage: 0.8 ML INJECTION (25 MG/ML VIAL) PER WEEK
     Dates: start: 2009

REACTIONS (8)
  - Muscle spasms [Recovered/Resolved]
  - Malaise [Recovered/Resolved]
  - Platelet count increased [Not Recovered/Not Resolved]
  - Haemoglobin decreased [Not Recovered/Not Resolved]
  - Influenza [Recovered/Resolved]
  - Nasopharyngitis [Recovered/Resolved]
  - Tooth abscess [Recovered/Resolved]
  - Injection site pain [Not Recovered/Not Resolved]
